FAERS Safety Report 24412001 (Version 1)
Quarter: 2024Q4

REPORT INFORMATION
  Report Type: Spontaneous
  Country: US (occurrence: US)
  Receive Date: 20241008
  Receipt Date: 20241008
  Transmission Date: 20250115
  Serious: Yes (Other)
  Sender: BRISTOL MYERS SQUIBB
  Company Number: US-BRISTOL-MYERS SQUIBB COMPANY-2024-158068

PATIENT
  Age: 60 Year
  Sex: Male

DRUGS (1)
  1. ELIQUIS [Suspect]
     Active Substance: APIXABAN
     Indication: Product used for unknown indication
     Route: 048

REACTIONS (9)
  - Inflammation [Unknown]
  - Lung disorder [Unknown]
  - Asthma [Unknown]
  - Candida infection [Unknown]
  - Narcolepsy [Unknown]
  - Diverticulitis [Unknown]
  - Sleep apnoea syndrome [Unknown]
  - Thrombosis [Unknown]
  - Scar [Unknown]
